FAERS Safety Report 5622060-2 (Version None)
Quarter: 2008Q1

REPORT INFORMATION
  Report Type: 
  Country: None (occurrence: None)
  Receive Date: 20080206
  Receipt Date: 20080128
  Transmission Date: 20080703
  Serious: Yes (Hospitalization)
  Sender: FDA-Public Use
  Company Number: TCI2008A00294

PATIENT
  Age: 77 Year
  Sex: Male

DRUGS (2)
  1. LANSOPRAZOLE [Suspect]
     Indication: ULCER HAEMORRHAGE
     Dosage: 60 MG (60 MG, 1 D)
     Route: 042
     Dates: start: 20080106, end: 20080120
  2. URSO                         (URSODEOXYCHOLIC ACID) ORAL USE (NOS)) [Concomitant]

REACTIONS (2)
  - BLOOD CREATININE INCREASED [None]
  - RENAL DISORDER [None]
